FAERS Safety Report 8319537-8 (Version None)
Quarter: 2012Q2

REPORT INFORMATION
  Report Type: 
  Country: None (occurrence: None)
  Receive Date: 20120427
  Receipt Date: 20120417
  Transmission Date: 20120825
  Serious: Yes (Other)
  Sender: FDA-Public Use
  Company Number: US-ABBOTT-12P-163-0918057-00

PATIENT
  Sex: Male

DRUGS (8)
  1. SYNTHROID [Concomitant]
     Indication: HYPOTHYROIDISM
  2. ADVAIR DISKUS 100/50 [Concomitant]
     Indication: ASTHMA
     Dosage: 100/50 MCG
  3. NEXIUM [Concomitant]
     Indication: GASTROOESOPHAGEAL REFLUX DISEASE
  4. HUMIRA [Suspect]
     Indication: PSORIASIS
     Dates: start: 20110224, end: 20120101
  5. MULTI FOR HIM [Concomitant]
     Indication: VITAMIN SUPPLEMENTATION
  6. FLOMAX [Concomitant]
     Indication: BENIGN PROSTATIC HYPERPLASIA
  7. ZOLOFT [Concomitant]
     Indication: PRODUCT USED FOR UNKNOWN INDICATION
  8. ALBUTEROL [Concomitant]
     Indication: PRODUCT USED FOR UNKNOWN INDICATION

REACTIONS (13)
  - LUNG NEOPLASM [None]
  - PULMONARY CONGESTION [None]
  - TREMOR [None]
  - COUGH [None]
  - INFLAMMATION [None]
  - PULMONARY HAEMORRHAGE [None]
  - LUNG DISORDER [None]
  - PULMONARY FIBROSIS [None]
  - HAEMORRHAGE [None]
  - CHEST X-RAY ABNORMAL [None]
  - PULMONARY MASS [None]
  - PULMONARY GRANULOMA [None]
  - PLEURISY [None]
